FAERS Safety Report 16828953 (Version 1)
Quarter: 2019Q3

REPORT INFORMATION
  Report Type: Spontaneous
  Country: CA (occurrence: CA)
  Receive Date: 20190919
  Receipt Date: 20190919
  Transmission Date: 20191005
  Serious: Yes (Other)
  Sender: FDA-Public Use
  Company Number: CA-TEVA-2019-CA-1110632

PATIENT
  Sex: Female

DRUGS (1)
  1. TEVA-VALSARTAN [Suspect]
     Active Substance: VALSARTAN
     Indication: HYPERTENSION

REACTIONS (5)
  - Pain [Unknown]
  - Breast cancer [Unknown]
  - Product contamination [Unknown]
  - Recalled product administered [Unknown]
  - Emotional distress [Unknown]
